FAERS Safety Report 7198324-0 (Version None)
Quarter: 2010Q4

REPORT INFORMATION
  Report Type: 
  Country: None (occurrence: None)
  Receive Date: 20101227
  Receipt Date: 20101214
  Transmission Date: 20110411
  Serious: Yes (Hospitalization)
  Sender: FDA-Public Use
  Company Number: PHHY2010NL84868

PATIENT
  Sex: Male
  Weight: 80 kg

DRUGS (3)
  1. EXJADE [Suspect]
     Indication: BLOOD IRON INCREASED
     Dosage: 1 DF, BID
     Route: 048
     Dates: start: 20100325, end: 20100730
  2. FUROSEMIDE TABLET [Concomitant]
     Dosage: 1 DF, UNK
     Route: 048
     Dates: start: 20090917
  3. EPREX [Concomitant]
     Dosage: 40000 INJECTION FLUID 40000 IU/ML 1ML, 40000 IU ONCE PER WEEK
     Dates: start: 20091224, end: 20101001

REACTIONS (3)
  - C-REACTIVE PROTEIN INCREASED [None]
  - HEPATIC FUNCTION ABNORMAL [None]
  - PYREXIA [None]
